FAERS Safety Report 9976209 (Version 1)
Quarter: 2014Q1

REPORT INFORMATION
  Report Type: Report from Study
  Country: US (occurrence: US)
  Receive Date: 20140306
  Receipt Date: 20140306
  Transmission Date: 20141002
  Serious: No
  Sender: FDA-Public Use
  Company Number: US-ABBVIE-13P-163-1164195-00

PATIENT
  Age: 55 Year
  Sex: Female
  Weight: 95.34 kg

DRUGS (4)
  1. HUMIRA [Suspect]
     Indication: PSORIASIS
     Dosage: 2 LOADING DOSE
     Route: 058
     Dates: start: 20131023, end: 20131023
  2. HUMIRA [Suspect]
     Route: 058
  3. METFORMIN [Concomitant]
     Indication: DIABETES MELLITUS
  4. LISINOPRIL [Concomitant]
     Indication: HYPERTENSION

REACTIONS (4)
  - Feeling cold [Recovered/Resolved]
  - Device malfunction [Unknown]
  - Device malfunction [Unknown]
  - Injection site pain [Recovered/Resolved]
